FAERS Safety Report 6766528-4 (Version None)
Quarter: 2010Q2

REPORT INFORMATION
  Report Type: 
  Country: None (occurrence: None)
  Receive Date: 20100611
  Receipt Date: 20100603
  Transmission Date: 20101027
  Serious: Yes (Disabling)
  Sender: FDA-Public Use
  Company Number: JP-MERCK-1005USA02908

PATIENT
  Age: 72 Year
  Sex: Female

DRUGS (3)
  1. NOROXIN [Suspect]
     Indication: PROPHYLAXIS
     Route: 048
     Dates: start: 20091228, end: 20100419
  2. CIPROFLOXACIN HCL [Suspect]
     Indication: PROPHYLAXIS
     Route: 048
     Dates: start: 20100401, end: 20100401
  3. CRAVIT [Concomitant]
     Indication: URINARY TRACT INFECTION
     Route: 048
     Dates: start: 20100401, end: 20100401

REACTIONS (1)
  - INTERSTITIAL LUNG DISEASE [None]
